FAERS Safety Report 7186623-8 (Version None)
Quarter: 2010Q4

REPORT INFORMATION
  Report Type: 
  Country: None (occurrence: None)
  Receive Date: 20101222
  Receipt Date: 20101208
  Transmission Date: 20110411
  Serious: Yes (Disabling, Other)
  Sender: FDA-Public Use
  Company Number: US-ROCHE-727384

PATIENT
  Sex: Female
  Weight: 56.7 kg

DRUGS (2)
  1. ACCUTANE [Suspect]
     Indication: ACNE
     Route: 065
     Dates: start: 19860101, end: 19870101
  2. ACCUTANE [Suspect]
     Route: 065
     Dates: start: 19890101, end: 19900101

REACTIONS (18)
  - ASTHENIA [None]
  - BLOOD DISORDER [None]
  - CHEST DISCOMFORT [None]
  - COLITIS ULCERATIVE [None]
  - CROHN'S DISEASE [None]
  - DEPRESSION [None]
  - DYSPEPSIA [None]
  - GASTROINTESTINAL INJURY [None]
  - GASTROINTESTINAL MOTILITY DISORDER [None]
  - HAEMORRHOIDS [None]
  - HEADACHE [None]
  - INFLAMMATORY BOWEL DISEASE [None]
  - INTERVERTEBRAL DISC DEGENERATION [None]
  - IRRITABLE BOWEL SYNDROME [None]
  - LARGE INTESTINAL ULCER [None]
  - OSTEOARTHRITIS [None]
  - SUICIDAL IDEATION [None]
  - THROAT IRRITATION [None]
